FAERS Safety Report 7115785-3 (Version None)
Quarter: 2010Q4

REPORT INFORMATION
  Report Type: 
  Country: None (occurrence: None)
  Receive Date: 20101122
  Receipt Date: 20101116
  Transmission Date: 20110411
  Serious: Yes (Hospitalization, Other)
  Sender: FDA-Public Use
  Company Number: GB-BAYER-201014197GPV

PATIENT
  Age: 69 Year
  Sex: Male
  Weight: 75 kg

DRUGS (18)
  1. ACETYLSALICYLIC ACID SRT [Suspect]
     Indication: CARDIOVASCULAR EVENT PROPHYLAXIS
     Route: 048
     Dates: start: 20081212, end: 20091120
  2. FOLIC ACID [Concomitant]
     Indication: ANAEMIA
     Route: 048
     Dates: start: 20031024
  3. IRBESTARTAN + HYDROCHLOROTHIAZIDE [Concomitant]
     Indication: ESSENTIAL HYPERTENSION
     Dosage: 300MG + 12.5MG
     Route: 048
     Dates: start: 20050211, end: 20100429
  4. ADIZEM XL MR [Concomitant]
     Indication: ESSENTIAL HYPERTENSION
     Route: 048
     Dates: start: 20100804
  5. ADIZEM XL MR [Concomitant]
     Route: 048
     Dates: start: 20051228, end: 20100429
  6. OMEPRAZOLE [Concomitant]
     Indication: DYSPEPSIA
     Route: 048
     Dates: start: 20080225
  7. DOXAZOSIN MESYLATE [Concomitant]
     Indication: ESSENTIAL HYPERTENSION
     Route: 048
     Dates: start: 20080225, end: 20100429
  8. ALFUZOSIN HYDROCHLORIDE [Concomitant]
     Indication: PROSTATISM
     Route: 048
     Dates: start: 20091214, end: 20100429
  9. TOP UP BLOOD TRANSFUSION [Concomitant]
     Indication: ANAEMIA
     Dosage: 3 UNITS
     Route: 042
     Dates: start: 20100404, end: 20100404
  10. FLUCLOXACILLIN [Concomitant]
     Indication: POSTOPERATIVE WOUND INFECTION
     Route: 048
     Dates: start: 20100604, end: 20100611
  11. MOTILIUM [Concomitant]
     Indication: ABDOMINAL PAIN
     Route: 048
     Dates: start: 20100703
  12. PEPPERMINT OIL ENTERIC COATED CAPSULES [Concomitant]
     Indication: ABDOMINAL PAIN
     Dosage: 1-2 TABLETS
     Route: 048
     Dates: start: 20100703
  13. CO-CODAMOL 8/500 [Concomitant]
     Indication: SCIATICA
     Dosage: 8MG/500MG - 16MG/1G
     Route: 048
     Dates: start: 20100804, end: 20100916
  14. IBUPROFEN [Concomitant]
     Indication: SCIATICA
     Route: 048
     Dates: start: 20100816
  15. CODYDRAMOL 10/500 [Concomitant]
     Indication: SCIATICA
     Dosage: 10/500 QDS/PRN
     Route: 048
     Dates: start: 20100919
  16. ASCORBIC ACID [Concomitant]
     Route: 048
     Dates: start: 20100901
  17. DIHYDROCODEINE BITARTRATE INJ [Concomitant]
     Indication: SCIATICA
     Dosage: 30-60MG PRN
     Route: 048
     Dates: start: 20100927
  18. LACTULOSE [Concomitant]
     Indication: CONSTIPATION
     Dosage: 10 - 30 ML
     Dates: start: 20101026

REACTIONS (13)
  - ANAEMIA [None]
  - BLADDER TRANSITIONAL CELL CARCINOMA [None]
  - BLADDER TRANSITIONAL CELL CARCINOMA STAGE III [None]
  - BLOOD PARATHYROID HORMONE ABNORMAL [None]
  - HAEMATURIA [None]
  - HYDRONEPHROSIS [None]
  - HYPERCALCAEMIA [None]
  - PROSTATE CANCER [None]
  - PROSTATIC SPECIFIC ANTIGEN INCREASED [None]
  - PROSTATISM [None]
  - PRURITUS [None]
  - RENAL IMPAIRMENT [None]
  - URINARY TRACT INFECTION [None]
